FAERS Safety Report 10058130 (Version 2)
Quarter: 2014Q2

REPORT INFORMATION
  Report Type: Spontaneous
  Country: US (occurrence: US)
  Receive Date: 20140404
  Receipt Date: 20140506
  Transmission Date: 20141212
  Serious: No
  Sender: FDA-Public Use
  Company Number: US-PFIZER INC-2014092313

PATIENT
  Age: 78 Year
  Sex: Female
  Weight: 77.1 kg

DRUGS (3)
  1. ADVIL COLD AND SINUS [Suspect]
     Indication: NASOPHARYNGITIS
     Dosage: UNK, TWO TIMES A DAY
     Route: 048
     Dates: start: 201403, end: 20140330
  2. ADVIL COLD AND SINUS [Suspect]
     Indication: SINUSITIS
  3. ADVIL [Concomitant]
     Indication: RHEUMATOID ARTHRITIS
     Dosage: UNK, AS NEEDED

REACTIONS (3)
  - Drug ineffective [Unknown]
  - Somnolence [Unknown]
  - Insomnia [Unknown]
